FAERS Safety Report 25676512 (Version 1)
Quarter: 2025Q3

REPORT INFORMATION
  Report Type: Spontaneous
  Country: EU (occurrence: EU)
  Receive Date: 20250813
  Receipt Date: 20250813
  Transmission Date: 20251021
  Serious: Yes (Other)
  Sender: ELI LILLY AND COMPANY
  Company Number: EU-Merck Healthcare KGaA-2025040089

PATIENT
  Sex: Male

DRUGS (6)
  1. ERBITUX [Suspect]
     Active Substance: CETUXIMAB
     Indication: Testicular cancer metastatic
     Route: 065
     Dates: start: 2021
  2. CAPECITABINE [Concomitant]
     Active Substance: CAPECITABINE
     Indication: Testicular cancer metastatic
     Route: 065
     Dates: start: 2021
  3. OXALIPLATIN [Concomitant]
     Active Substance: OXALIPLATIN
     Indication: Testicular cancer metastatic
     Route: 065
     Dates: start: 2021
  4. FLUOROURACIL [Concomitant]
     Active Substance: FLUOROURACIL
     Indication: Testicular cancer metastatic
     Route: 065
     Dates: start: 2021
  5. IRINOTECAN [Concomitant]
     Active Substance: IRINOTECAN
     Indication: Testicular cancer metastatic
     Route: 065
     Dates: start: 2021
  6. LEUCOVORIN [Concomitant]
     Active Substance: LEUCOVORIN\LEUCOVORIN CALCIUM
     Indication: Testicular cancer metastatic
     Route: 065
     Dates: start: 2021

REACTIONS (3)
  - Malignant neoplasm progression [Unknown]
  - General physical health deterioration [Unknown]
  - Off label use [Unknown]
